FAERS Safety Report 13424599 (Version 1)
Quarter: 2017Q2

REPORT INFORMATION
  Report Type: Spontaneous
  Country: US (occurrence: US)
  Receive Date: 20170410
  Receipt Date: 20170410
  Transmission Date: 20170830
  Serious: Yes (Other)
  Sender: FDA-Public Use
  Company Number: US-FRESENIUS KABI-FK201702904

PATIENT
  Sex: Male
  Weight: 115.67 kg

DRUGS (9)
  1. PERCOCET [Suspect]
     Active Substance: ACETAMINOPHEN\OXYCODONE HYDROCHLORIDE
     Indication: PAIN
  2. LYRICA [Concomitant]
     Active Substance: PREGABALIN
     Route: 065
  3. LYRICA [Concomitant]
     Active Substance: PREGABALIN
     Indication: NEURALGIA
     Route: 065
  4. LYRICA [Concomitant]
     Active Substance: PREGABALIN
     Route: 065
  5. LYRICA [Concomitant]
     Active Substance: PREGABALIN
     Route: 065
  6. DILAUDID [Suspect]
     Active Substance: HYDROMORPHONE HYDROCHLORIDE
     Indication: PAIN
     Route: 042
  7. FENTANYL. [Suspect]
     Active Substance: FENTANYL
     Indication: PAIN
     Route: 065
  8. LEVEMIR [Concomitant]
     Active Substance: INSULIN DETEMIR
     Indication: DIABETES MELLITUS
     Route: 065
  9. LYRICA [Concomitant]
     Active Substance: PREGABALIN
     Route: 048

REACTIONS (1)
  - Cardiac fibrillation [Unknown]
